FAERS Safety Report 5874211-2 (Version None)
Quarter: 2008Q3

REPORT INFORMATION
  Report Type: 
  Country: None (occurrence: None)
  Receive Date: 20080908
  Receipt Date: 20080825
  Transmission Date: 20090109
  Serious: Yes (Other)
  Sender: FDA-Public Use
  Company Number: FR-JNJFOC-20080600190

PATIENT
  Sex: Male
  Weight: 55 kg

DRUGS (4)
  1. PREZISTA [Suspect]
     Indication: HIV INFECTION
     Route: 048
  2. TMC125 [Concomitant]
     Indication: HIV INFECTION
     Route: 048
  3. NORVIR [Concomitant]
     Indication: HIV INFECTION
     Route: 048
  4. ISENTRESS [Concomitant]
     Indication: HIV INFECTION
     Route: 048

REACTIONS (2)
  - EPISTAXIS [None]
  - HAEMATURIA [None]
